FAERS Safety Report 22538387 (Version 1)
Quarter: 2023Q2

REPORT INFORMATION
  Report Type: Spontaneous
  Country: US (occurrence: US)
  Receive Date: 20230609
  Receipt Date: 20230609
  Transmission Date: 20230721
  Serious: Yes (Hospitalization)
  Sender: FDA-Public Use
  Company Number: US-BRISTOL-MYERS SQUIBB COMPANY-2023-080779

PATIENT
  Age: 69 Year
  Sex: Female
  Weight: 109.77 kg

DRUGS (41)
  1. REVLIMID [Suspect]
     Active Substance: LENALIDOMIDE
     Indication: Plasma cell myeloma
     Dosage: FREQUENCY: ONCE DAILY X 14 DAYS THEN 7 DAYS OFF
     Route: 048
     Dates: start: 20230513
  2. REVLIMID [Suspect]
     Active Substance: LENALIDOMIDE
     Route: 048
  3. SENNA [Concomitant]
     Active Substance: SENNA LEAF\SENNOSIDES\SENNOSIDES A AND B
     Indication: Product used for unknown indication
     Dosage: TAKE 2 TABLETS BY MOUTH NIGHTLY
     Route: 048
  4. SENNA [Concomitant]
     Active Substance: SENNA LEAF\SENNOSIDES\SENNOSIDES A AND B
     Dosage: TAKE 2 TABLETS BY MOUTH NIGHTLY
     Route: 048
  5. TRAMADOL [Concomitant]
     Active Substance: TRAMADOL
     Indication: Product used for unknown indication
     Dosage: TAKE 1 TABLET BY MOUTH EVERY 4 HOURS FOR UP TO 3 DAYS AS NEEDED FOR PAIN. ?TAKE LOWEST DOSE POSSIBLE
     Route: 048
  6. TRIAMCINOLONE [Concomitant]
     Active Substance: TRIAMCINOLONE
     Indication: Product used for unknown indication
     Dosage: 0.1% CREAM 15GM ?APPLY TOPICALL TO THE AFFECTED AREA TWICE DAILY AS NEEDED
  7. VERAPAMIL [Concomitant]
     Active Substance: VERAPAMIL HYDROCHLORIDE
     Indication: Product used for unknown indication
     Dosage: TAKE 1 TABLET BY MOUTH EVERY DAY
     Route: 048
  8. ALLEGRA ALLERGY [Concomitant]
     Active Substance: FEXOFENADINE HYDROCHLORIDE
     Indication: Product used for unknown indication
     Dosage: 180 MG GELCAPS(OTC)
  9. CALCIUM [Concomitant]
     Active Substance: CALCIUM
     Indication: Product used for unknown indication
  10. PRILOSEC [Concomitant]
     Active Substance: OMEPRAZOLE MAGNESIUM
     Indication: Product used for unknown indication
  11. ERGOCALCIFEROL [Concomitant]
     Active Substance: ERGOCALCIFEROL
     Indication: Product used for unknown indication
     Dosage: 1000 UNITS
  12. ACYCLOVIR [Concomitant]
     Active Substance: ACYCLOVIR
     Indication: Infection
     Dosage: TAKE 1 TABLET BY MOUTH TWICE DAILY
     Route: 048
  13. ACYCLOVIR [Concomitant]
     Active Substance: ACYCLOVIR
     Indication: Prophylaxis
  14. ALBUTEROL [Concomitant]
     Active Substance: ALBUTEROL
     Indication: Wheezing
     Dosage: (200 PUFFS) INHALE 1 TO 2 PUFF BY MOUTH EVERY 4 HOURS AS NEEDED
     Route: 048
  15. ALBUTEROL [Concomitant]
     Active Substance: ALBUTEROL
     Indication: Dyspnoea
  16. AMOXICILLIN [Concomitant]
     Active Substance: AMOXICILLIN
     Indication: Product used for unknown indication
     Dosage: TAKE 1 CAPSULE BY MOUTH EVERY 8 HOURS FOR 10 DAYS
     Route: 048
  17. ATORVASTATIN CALCIUM [Concomitant]
     Active Substance: ATORVASTATIN CALCIUM
     Indication: Product used for unknown indication
     Dosage: TAKE 1 TABLET BY MOUTH EVERY NIGHT AT BEDTIME
     Route: 048
  18. AZITHROMYCIN [Concomitant]
     Active Substance: AZITHROMYCIN
     Indication: Product used for unknown indication
     Dosage: TAKE 2 TABLETS BY MOUTH ON DAY 1, THEN TAKE 1 TABLET BY MOUTH DAILY FOR 4 DAYS
     Route: 048
  19. BISACODYL [Concomitant]
     Active Substance: BISACODYL
     Indication: Constipation
     Dosage: TAKE 2 TABLETS BY MOUTH TWICE DAILY
     Route: 048
  20. BISACODYL [Concomitant]
     Active Substance: BISACODYL
     Dosage: PLACED 1 SUPPOSITARY RECTALLY EVERY 48 HOURS AS NEEDED
     Route: 054
  21. COVID19 MODERNA BIVALENT [Concomitant]
     Indication: Product used for unknown indication
     Dosage: 0.5ML IN ?THE MUSCLE AS DIRECTED TODAY
  22. CYCLOBENZAPRINE [Concomitant]
     Active Substance: CYCLOBENZAPRINE
     Indication: Product used for unknown indication
     Dosage: TAKE 1/2 TABLET BY MOUTH EVERY 8 HOURS AS NEEDED
     Route: 048
  23. DEXAMETHASONE [Concomitant]
     Active Substance: DEXAMETHASONE
     Indication: Product used for unknown indication
     Dosage: TAKE 5 TABLETS BY MOUTH DAILY AS DIRECTED
     Route: 048
  24. FLUCONAZOLE [Concomitant]
     Active Substance: FLUCONAZOLE
     Indication: Product used for unknown indication
     Dosage: ADMINISTER 0.7ML IN THE MUSCLE AS DIRECTED TODAY
  25. LISINOPRIL [Concomitant]
     Active Substance: LISINOPRIL
     Indication: Product used for unknown indication
     Dosage: TAKE 1 TABLET BY MOUTH EVERY DAY
     Route: 048
  26. METHOCARBAMOL [Concomitant]
     Active Substance: METHOCARBAMOL
     Indication: Product used for unknown indication
     Dosage: TAKE 1 MOUTH EVERY 6 HOURS AS NEEDED FOR MUSCLE TIGHTNESS
     Route: 048
  27. METHYLPREDNISOLONE [Concomitant]
     Active Substance: METHYLPREDNISOLONE
     Indication: Product used for unknown indication
  28. MONTELUKAST [Concomitant]
     Active Substance: MONTELUKAST SODIUM
     Indication: Asthma
     Dosage: TAKE 1 TABLET BY MOUTH EVERY NIGHT AS NEEDED
     Route: 048
  29. MONTELUKAST [Concomitant]
     Active Substance: MONTELUKAST SODIUM
     Indication: Hypersensitivity
  30. MORPHINE SULFATE [Concomitant]
     Active Substance: MORPHINE SULFATE
     Indication: Product used for unknown indication
     Dosage: TAKE 1 TABLET (EXTENDED RELEASE) BY MOUTH EVERY 12 HOURS
     Route: 048
  31. MORPHINE SULFATE [Concomitant]
     Active Substance: MORPHINE SULFATE
     Dosage: TAKE 1 TABLET BY MOUTH EVERY 12 HOURS
     Route: 048
  32. NALOXONE [Concomitant]
     Active Substance: NALOXONE
     Indication: Product used for unknown indication
     Dosage: 4MG/0.1M NAS SPRAY 2 PACK ?1 SPRAY IN NOSTRIL AS NEEDED FOR OPIOD REVERSAL
  33. ONDANSETRON [Concomitant]
     Active Substance: ONDANSETRON
     Indication: Nausea
     Dosage: DISSOLVE 1 TABLET ON THE TONGUE EVERY 8 HOURS AS NEEDED FOR NAUSEA OR VOMITING
     Route: 048
  34. ONDANSETRON [Concomitant]
     Active Substance: ONDANSETRON
     Indication: Vomiting
  35. ACETAMINOPHEN [Concomitant]
     Active Substance: ACETAMINOPHEN
     Indication: Pain
     Dosage: 10-325 MG (TAKE 1 TABLET MOUTH EVERY 8 HOURS FOR UP TO 7 ?DAYS AS NEEDED FOR PAIN. MAX DAILY AMOUNT:
     Route: 048
  36. ACETAMINOPHEN [Concomitant]
     Active Substance: ACETAMINOPHEN
     Dosage: TAKE 1 TABLET MOUTH EVERY 4 HOURS AS NEEDED ?FOR PAIN
     Route: 048
  37. ACETAMINOPHEN [Concomitant]
     Active Substance: ACETAMINOPHEN
     Dosage: TAKE 1 TABLET MOUTH EVERY 4 HOURS AS NEEDED ?FOR PAIN
     Route: 048
  38. ACETAMINOPHEN [Concomitant]
     Active Substance: ACETAMINOPHEN
     Dosage: 10-325 MG (TAKE 1 TABLET MOUTH EVERY 8 HOURS FOR UP TO 7 ?DAYS AS NEEDED FOR PAIN. MAX DAILY AMOUNT:
     Route: 048
  39. POLYETH GLYCOL [Concomitant]
     Indication: Product used for unknown indication
     Dosage: 3350 NF POWDER ?DISSOLVE 17 GRAM BY MOUTH IN LIQUID DAILY
     Route: 048
  40. PREDNISONE [Concomitant]
     Active Substance: PREDNISONE
     Indication: Product used for unknown indication
     Dosage: TAKE TABLET BY MOUTH DAILY FOR 5 DAYS
     Route: 048
  41. PROCHLORPERAZINE [Concomitant]
     Active Substance: PROCHLORPERAZINE
     Indication: Nausea
     Dosage: TAKE 1 TABLET BY MOUTH EVERY 6 HOURS AS NEEDED FOR NAUSEA
     Route: 048

REACTIONS (5)
  - Nausea [Recovered/Resolved]
  - Vomiting [Recovered/Resolved]
  - Dehydration [Recovered/Resolved]
  - Renal disorder [Recovered/Resolved]
  - Off label use [Unknown]

NARRATIVE: CASE EVENT DATE: 20230601
